FAERS Safety Report 4801640-8 (Version None)
Quarter: 2005Q4

REPORT INFORMATION
  Report Type: 
  Country: None (occurrence: None)
  Receive Date: 20051014
  Receipt Date: 20051014
  Transmission Date: 20060501
  Serious: Yes (Death)
  Sender: FDA-Public Use
  Company Number: None

PATIENT
  Sex: Female
  Weight: 110 kg

DRUGS (2)
  1. IRINOTECAN 125 MG/M2 [Suspect]
     Indication: GLIOBLASTOMA MULTIFORME
     Dosage: 275 MG
     Dates: start: 20050708
  2. BEVACIZUMAB 10 MG/KG [Suspect]
     Indication: GLIOBLASTOMA MULTIFORME
     Dosage: 1100 MG
     Dates: start: 20050708

REACTIONS (1)
  - PULMONARY EMBOLISM [None]
